FAERS Safety Report 9904184 (Version 4)
Quarter: 2014Q4

REPORT INFORMATION
  Report Type: Report from Study
  Country: CA (occurrence: CA)
  Receive Date: 20140218
  Receipt Date: 20141002
  Transmission Date: 20150529
  Serious: Yes (Other)
  Sender: FDA-Public Use
  Company Number: CA-ROCHE-1348031

PATIENT
  Age: 50 Year
  Sex: Female
  Weight: 60 kg

DRUGS (13)
  1. OXYCONTIN [Concomitant]
     Active Substance: OXYCODONE HYDROCHLORIDE
  2. PREDNISONE. [Concomitant]
     Active Substance: PREDNISONE
  3. ACTEMRA [Suspect]
     Active Substance: TOCILIZUMAB
     Indication: RHEUMATOID ARTHRITIS
     Route: 042
     Dates: start: 20101115
  4. ACTEMRA [Suspect]
     Active Substance: TOCILIZUMAB
     Route: 042
     Dates: start: 20120911
  5. METHOTREXATE [Concomitant]
     Active Substance: METHOTREXATE
     Route: 058
  6. CELEBREX [Concomitant]
     Active Substance: CELECOXIB
  7. SIMVASTATIN. [Concomitant]
     Active Substance: SIMVASTATIN
  8. ACTEMRA [Suspect]
     Active Substance: TOCILIZUMAB
     Route: 042
     Dates: start: 20110321
  9. ACTONEL [Concomitant]
     Active Substance: RISEDRONATE SODIUM
  10. RABEPRAZOLE [Concomitant]
     Active Substance: RABEPRAZOLE
  11. FLUOXETINE [Concomitant]
     Active Substance: FLUOXETINE\FLUOXETINE HYDROCHLORIDE
  12. ACTEMRA [Suspect]
     Active Substance: TOCILIZUMAB
     Route: 042
     Dates: start: 20120206
  13. ACTEMRA [Suspect]
     Active Substance: TOCILIZUMAB
     Route: 042
     Dates: start: 20121009

REACTIONS (2)
  - Arthropathy [Unknown]
  - Infusion related reaction [Recovered/Resolved]

NARRATIVE: CASE EVENT DATE: 20140122
